FAERS Safety Report 4864888-2 (Version None)
Quarter: 2005Q4

REPORT INFORMATION
  Report Type: 
  Country: None (occurrence: None)
  Receive Date: 20051201
  Receipt Date: 20050821
  Transmission Date: 20060501
  Serious: No
  Sender: FDA-Public Use
  Company Number: 2005PV001113

PATIENT
  Age: 52 Year
  Sex: Female
  Weight: 171.4597 kg

DRUGS (13)
  1. BYETTA [Suspect]
     Indication: DIABETES MELLITUS INSULIN-DEPENDENT
     Dosage: 5 MCG; BID; SC
     Route: 058
     Dates: start: 20050816
  2. TOPROL-XL [Concomitant]
  3. LOTENSIN [Concomitant]
  4. WARFARIN SODIUM [Concomitant]
  5. ASPIRIN [Concomitant]
  6. POTASSIUM [Concomitant]
  7. VYTORIN [Concomitant]
  8. NITROGLYCERIN ^PHARMACIA + UPJOHN^ [Concomitant]
  9. MAGNESIUM [Concomitant]
  10. DILTIAZEM HCL [Concomitant]
  11. HUMULIN U [Concomitant]
  12. NOVOLOG [Concomitant]
  13. INSULIN [Concomitant]

REACTIONS (5)
  - BLISTER [None]
  - ERYTHEMA [None]
  - FEELING HOT [None]
  - RASH [None]
  - TENDERNESS [None]
